FAERS Safety Report 4399482-3 (Version None)
Quarter: 2004Q2

REPORT INFORMATION
  Report Type: 
  Country: None (occurrence: None)
  Receive Date: 20040621
  Receipt Date: 20031105
  Transmission Date: 20050107
  Serious: Yes (Other)
  Sender: FDA-Public Use
  Company Number: USA-2003-0006726

PATIENT
  Age: 43 Year
  Sex: Male

DRUGS (10)
  1. OXYCONTIN [Suspect]
     Dosage: 10 MG, ORAL
     Route: 048
     Dates: start: 19991228, end: 20001103
  2. LORTAB [Suspect]
     Dosage: 7.5 MG, ORAL
     Route: 048
     Dates: start: 20000124
  3. DIAZEPAM [Concomitant]
  4. ULTRAM [Concomitant]
  5. ZANAFLEX [Concomitant]
  6. ZOLOFT [Concomitant]
  7. ALPRAZOLAM [Concomitant]
  8. EFFEXOR [Concomitant]
  9. TYLENOL W/ CODEINE NO. 3 [Concomitant]
  10. VOLTAREN-XR [Suspect]
     Dosage: 100 MG  ORAL
     Route: 048
     Dates: start: 20000124

REACTIONS (3)
  - DRUG DEPENDENCE [None]
  - EMOTIONAL DISTRESS [None]
  - PAIN [None]
